FAERS Safety Report 7211629-X (Version None)
Quarter: 2011Q1

REPORT INFORMATION
  Report Type: 
  Country: None (occurrence: None)
  Receive Date: 20110105
  Receipt Date: 20101220
  Transmission Date: 20110831
  Serious: No
  Sender: FDA-Public Use
  Company Number: US-B.I. PHARMACEUTICALS,INC./RIDGEFIELD-2010-BP-15222BP

PATIENT

DRUGS (2)
  1. PRADAXA [Suspect]
     Dosage: 300 MG
  2. WARFARIN [Concomitant]

REACTIONS (1)
  - PAIN IN EXTREMITY [None]
